FAERS Safety Report 17132144 (Version 3)
Quarter: 2020Q2

REPORT INFORMATION
  Report Type: Spontaneous
  Country: JP (occurrence: JP)
  Receive Date: 20191210
  Receipt Date: 20200413
  Transmission Date: 20200713
  Serious: Yes (Hospitalization, Other)
  Sender: FDA-Public Use
  Company Number: NVSJ2019JP002590

PATIENT
  Age: 61 Year
  Sex: Female
  Weight: 30 kg

DRUGS (45)
  1. HARTMANN [Concomitant]
     Active Substance: CALCIUM CHLORIDE\POTASSIUM CHLORIDE\SODIUM CHLORIDE\SODIUM LACTATE
     Dosage: 500 ML, QD
     Route: 041
     Dates: start: 20161010, end: 20161010
  2. HARTMANN [Concomitant]
     Active Substance: CALCIUM CHLORIDE\POTASSIUM CHLORIDE\SODIUM CHLORIDE\SODIUM LACTATE
     Dosage: 500 ML, QD
     Route: 041
     Dates: start: 20161107, end: 20161107
  3. HARTMANN [Concomitant]
     Active Substance: CALCIUM CHLORIDE\POTASSIUM CHLORIDE\SODIUM CHLORIDE\SODIUM LACTATE
     Dosage: 500 ML, QD
     Route: 041
     Dates: start: 20161121, end: 20161122
  4. SODIUM CHLORIDE. [Concomitant]
     Active Substance: SODIUM CHLORIDE
     Dosage: 100 UNK, BID
     Route: 042
     Dates: start: 20161122, end: 20161122
  5. VITAMEDIN INTRAVENOUS [Concomitant]
     Active Substance: CYANOCOBALAMIN\PYRIDOXINE HYDROCHLORIDE\THIAMINE
     Indication: PROPHYLAXIS
     Dosage: UNK, QD
     Route: 041
     Dates: start: 20111103, end: 20111103
  6. ACELIO [Concomitant]
     Active Substance: ACETAMINOPHEN
     Dosage: UNK, QD
     Route: 042
     Dates: start: 20161015, end: 20161015
  7. CEFAZOLINUM NATRICUM [Concomitant]
     Indication: TONGUE NEOPLASM MALIGNANT STAGE UNSPECIFIED
     Dosage: UNK, QD
     Route: 042
     Dates: start: 20161107, end: 20161107
  8. ACELIO [Concomitant]
     Active Substance: ACETAMINOPHEN
     Dosage: UNK, QD
     Route: 042
     Dates: start: 20161011, end: 20161012
  9. ACELIO [Concomitant]
     Active Substance: ACETAMINOPHEN
     Dosage: UNK, TID
     Route: 042
     Dates: start: 20161117, end: 20161117
  10. PN TWIN [Concomitant]
     Indication: TONGUE NEOPLASM MALIGNANT STAGE UNSPECIFIED
     Dosage: UNK, BID
     Route: 042
     Dates: start: 20161103, end: 20161117
  11. PN TWIN [Concomitant]
     Dosage: UNK
     Route: 065
  12. ACELIO [Concomitant]
     Active Substance: ACETAMINOPHEN
     Dosage: UNK, BID
     Route: 042
     Dates: start: 20161014, end: 20161114
  13. SULBACILLIN [Concomitant]
     Active Substance: AMPICILLIN SODIUM\SULBACTAM SODIUM
     Indication: TONGUE NEOPLASM MALIGNANT STAGE UNSPECIFIED
     Dosage: 1.5 G, QID
     Route: 042
     Dates: start: 20161118, end: 20161121
  14. HUMULIN R [Concomitant]
     Active Substance: INSULIN HUMAN
     Indication: TONGUE NEOPLASM MALIGNANT STAGE UNSPECIFIED
     Dosage: 24 U, QD
     Route: 065
     Dates: start: 20161121, end: 20161122
  15. HARTMANN [Concomitant]
     Active Substance: CALCIUM CHLORIDE\POTASSIUM CHLORIDE\SODIUM CHLORIDE\SODIUM LACTATE
     Dosage: 500 ML, BID
     Route: 041
     Dates: start: 20161011, end: 20161011
  16. SODIUM CHLORIDE. [Concomitant]
     Active Substance: SODIUM CHLORIDE
     Indication: PROPHYLAXIS
     Dosage: 100 ML, BID
     Route: 058
     Dates: start: 20161011, end: 20161012
  17. SODIUM CHLORIDE. [Concomitant]
     Active Substance: SODIUM CHLORIDE
     Dosage: 100 UNK, QD
     Route: 058
     Dates: start: 20161107, end: 20161107
  18. SODIUM CHLORIDE. [Concomitant]
     Active Substance: SODIUM CHLORIDE
     Dosage: 100 ML, 6QD
     Route: 042
     Dates: start: 20161121, end: 20161121
  19. PN-TWIN NO. 2 [Concomitant]
     Indication: PARENTERAL NUTRITION
     Dosage: 1 DF, QD
     Route: 065
     Dates: start: 20161116, end: 20161120
  20. DAIMEDIN [Concomitant]
     Indication: TONGUE NEOPLASM MALIGNANT STAGE UNSPECIFIED
     Dosage: UNK, QD
     Route: 065
     Dates: start: 20111103, end: 20111120
  21. ACELIO [Concomitant]
     Active Substance: ACETAMINOPHEN
     Indication: TONGUE NEOPLASM MALIGNANT STAGE UNSPECIFIED
     Dosage: UNK, BID
     Route: 042
     Dates: start: 20161010, end: 20161010
  22. FUNGUARD [Concomitant]
     Active Substance: MICAFUNGIN SODIUM
     Dosage: 50 MG, BID
     Route: 042
     Dates: start: 20161121, end: 20161121
  23. DOCETAXEL INTRAVENOUS INFUSION 20MG/2ML [Suspect]
     Active Substance: DOCETAXEL
     Indication: TONGUE NEOPLASM MALIGNANT STAGE UNSPECIFIED
     Dosage: 39.51 MG, QD
     Route: 058
     Dates: start: 20161011
  24. SOLDEM 3A [Concomitant]
     Active Substance: CARBOHYDRATES\POTASSIUM CHLORIDE\SODIUM CHLORIDE\SODIUM LACTATE
     Indication: PROPHYLAXIS
     Dosage: 500 ML, QD
     Route: 041
     Dates: start: 20161003, end: 20161005
  25. ONDANSETROM [Concomitant]
     Active Substance: ONDANSETRON
     Indication: PROPHYLAXIS
     Dosage: 4 MG, BID
     Route: 042
     Dates: start: 20161011, end: 20161012
  26. DEXART [Concomitant]
     Active Substance: DEXAMETHASONE SODIUM PHOSPHATE
     Indication: PROPHYLAXIS
     Dosage: UNK, BID
     Route: 042
     Dates: start: 20161011, end: 20161012
  27. AQUPLA [Concomitant]
     Active Substance: NEDAPLATIN
     Indication: TONGUE NEOPLASM MALIGNANT STAGE UNSPECIFIED
     Dosage: 52.68 MG, QD
     Route: 041
     Dates: start: 20161011, end: 20161011
  28. SOLITA-T3 [Concomitant]
     Active Substance: POTASSIUM CHLORIDE\SODIUM CHLORIDE\SODIUM LACTATE
     Indication: PROPHYLAXIS
     Dosage: UNK, BID
     Route: 041
     Dates: start: 20161016, end: 20161104
  29. SOSEGON [Concomitant]
     Active Substance: PENTAZOCINE
     Indication: TONGUE NEOPLASM MALIGNANT STAGE UNSPECIFIED
     Dosage: UNK, QD
     Route: 065
     Dates: start: 20161107, end: 20161107
  30. FUNGUARD [Concomitant]
     Active Substance: MICAFUNGIN SODIUM
     Dosage: 50 MG, QD
     Route: 042
     Dates: start: 20161122, end: 20161122
  31. SOLDEM 3A [Concomitant]
     Active Substance: CARBOHYDRATES\POTASSIUM CHLORIDE\SODIUM CHLORIDE\SODIUM LACTATE
     Dosage: 500 ML, QD
     Route: 041
     Dates: start: 20161010, end: 20161010
  32. SOLDEM 3A [Concomitant]
     Active Substance: CARBOHYDRATES\POTASSIUM CHLORIDE\SODIUM CHLORIDE\SODIUM LACTATE
     Dosage: 500 ML, TID
     Route: 041
     Dates: start: 20161011
  33. SODIUM CHLORIDE. [Concomitant]
     Active Substance: SODIUM CHLORIDE
     Dosage: 100 ML, QID
     Route: 042
     Dates: start: 20161118, end: 20161119
  34. PN TWIN [Concomitant]
     Dosage: UNK, QD
     Route: 042
     Dates: start: 20161119, end: 20161122
  35. ACELIO [Concomitant]
     Active Substance: ACETAMINOPHEN
     Dosage: UNK, QD
     Route: 042
     Dates: start: 20161119
  36. ATARAX [Concomitant]
     Active Substance: HYDROXYZINE HYDROCHLORIDE
     Indication: TONGUE NEOPLASM MALIGNANT STAGE UNSPECIFIED
     Dosage: UNK, QD
     Route: 065
     Dates: start: 20161107, end: 20161107
  37. CISPLATIN. [Suspect]
     Active Substance: CISPLATIN
     Indication: TONGUE NEOPLASM MALIGNANT STAGE UNSPECIFIED
     Route: 065
  38. HARTMANN [Concomitant]
     Active Substance: CALCIUM CHLORIDE\POTASSIUM CHLORIDE\SODIUM CHLORIDE\SODIUM LACTATE
     Indication: TONGUE NEOPLASM MALIGNANT STAGE UNSPECIFIED
     Dosage: 500 ML
     Route: 041
     Dates: start: 20161002, end: 20161002
  39. SOLDEM 3A [Concomitant]
     Active Substance: CARBOHYDRATES\POTASSIUM CHLORIDE\SODIUM CHLORIDE\SODIUM LACTATE
     Dosage: 500 ML, BID
     Route: 041
     Dates: start: 20161012, end: 20161012
  40. SODIUM CHLORIDE. [Concomitant]
     Active Substance: SODIUM CHLORIDE
     Dosage: 100 ML, 5QD
     Route: 042
     Dates: start: 20161120, end: 20161120
  41. DEXART [Concomitant]
     Active Substance: DEXAMETHASONE SODIUM PHOSPHATE
     Dosage: UNK, QD
     Route: 042
     Dates: start: 20161013, end: 20161013
  42. FUNGUARD [Concomitant]
     Active Substance: MICAFUNGIN SODIUM
     Indication: TONGUE NEOPLASM MALIGNANT STAGE UNSPECIFIED
     Dosage: 50 MG, QD
     Route: 042
     Dates: start: 20161120, end: 20161120
  43. SOLDEM 3A [Concomitant]
     Active Substance: CARBOHYDRATES\POTASSIUM CHLORIDE\SODIUM CHLORIDE\SODIUM LACTATE
     Dosage: 500 ML, BID
     Route: 041
     Dates: start: 20161013, end: 20161013
  44. ACELIO [Concomitant]
     Active Substance: ACETAMINOPHEN
     Dosage: UNK, BID
     Route: 042
     Dates: start: 20161118, end: 20161118
  45. ACELIO [Concomitant]
     Active Substance: ACETAMINOPHEN
     Dosage: UNK, BID
     Route: 042
     Dates: start: 20161120, end: 20161122

REACTIONS (8)
  - Anaemia [Unknown]
  - White blood cell count decreased [Unknown]
  - Systemic candida [Recovered/Resolved]
  - Tongue neoplasm malignant stage unspecified [Unknown]
  - Pneumothorax [Recovered/Resolved]
  - Neutropenia [Recovered/Resolved]
  - Malignant neoplasm progression [Unknown]
  - Pyrexia [Recovered/Resolved]

NARRATIVE: CASE EVENT DATE: 20161011
